FAERS Safety Report 6042211-8 (Version None)
Quarter: 2009Q1

REPORT INFORMATION
  Report Type: 
  Country: None (occurrence: None)
  Receive Date: 20090116
  Receipt Date: 20080704
  Transmission Date: 20090719
  Serious: No
  Sender: FDA-Public Use
  Company Number: US-BAYER-200812970BCC

PATIENT
  Age: 74 Year
  Sex: Male
  Weight: 84 kg

DRUGS (8)
  1. ALEVE (CAPLET) [Suspect]
     Indication: PAIN IN EXTREMITY
     Dosage: TOTAL DAILY DOSE: 400 MG  UNIT DOSE: 220 MG
     Route: 048
     Dates: start: 20080613, end: 20080703
  2. ALEVE (CAPLET) [Suspect]
     Dosage: UNIT DOSE: 200 MG
     Dates: start: 20080704
  3. TOPROL-XL [Concomitant]
  4. VERAPAMIL [Concomitant]
  5. ALTACE [Concomitant]
  6. ASPIRIN [Concomitant]
     Route: 048
  7. PRAVACHOL [Concomitant]
  8. LASIX [Concomitant]

REACTIONS (1)
  - DIZZINESS [None]
